FAERS Safety Report 9209894 (Version 1)
Quarter: 2013Q2

REPORT INFORMATION
  Report Type: Spontaneous
  Country: US (occurrence: US)
  Receive Date: 20130404
  Receipt Date: 20130404
  Transmission Date: 20140414
  Serious: No
  Sender: FDA-Public Use
  Company Number: US-009507513-1304USA001026

PATIENT
  Age: 55 Year
  Sex: Female

DRUGS (5)
  1. PEGINTRON [Suspect]
     Indication: HEPATITIS C
     Dosage: UNK
     Dates: start: 20130111
  2. REBETOL [Suspect]
     Dosage: UNK
     Route: 048
     Dates: start: 20130111
  3. COMPAZINE [Concomitant]
  4. CIMETIDINE [Concomitant]
     Indication: CONSTIPATION
  5. CIMETIDINE [Concomitant]
     Indication: NAUSEA

REACTIONS (13)
  - Anaemia [Unknown]
  - Fatigue [Unknown]
  - Conjunctivitis [Unknown]
  - Self-medication [Unknown]
  - Lip dry [Unknown]
  - Anorectal discomfort [Unknown]
  - Pain in extremity [Unknown]
  - Dyspepsia [Unknown]
  - Chest pain [Unknown]
  - Depression [Unknown]
  - Constipation [Unknown]
  - Nausea [Unknown]
  - Hot flush [Unknown]
